FAERS Safety Report 21146537 (Version 1)
Quarter: 2022Q3

REPORT INFORMATION
  Report Type: Other
  Country: NL (occurrence: None)
  Receive Date: 20220729
  Receipt Date: 20220729
  Transmission Date: 20221026
  Serious: Yes (Hospitalization, Other)
  Sender: FDA-Public Use
  Company Number: NL-Inventia-000193

PATIENT
  Age: 67 Year
  Sex: Male

DRUGS (1)
  1. OLMESARTAN [Suspect]
     Active Substance: OLMESARTAN
     Indication: Chronic obstructive pulmonary disease

REACTIONS (4)
  - Red blood cell abnormality [Recovered/Resolved]
  - Pancytopenia [Recovering/Resolving]
  - Respiratory failure [Unknown]
  - Intentional overdose [Unknown]
